FAERS Safety Report 9099110 (Version 2)
Quarter: 2013Q1

REPORT INFORMATION
  Report Type: Spontaneous
  Country: US (occurrence: US)
  Receive Date: 20130213
  Receipt Date: 20130326
  Transmission Date: 20140127
  Serious: Yes (Life-Threatening, Hospitalization, Disabling)
  Sender: FDA-Public Use
  Company Number: US-009507513-1302USA004028

PATIENT
  Sex: Female
  Weight: 71.67 kg

DRUGS (5)
  1. JANUMET [Suspect]
     Dosage: UNK
     Route: 048
  2. JANUVIA [Suspect]
     Route: 048
  3. PREDNISONE [Concomitant]
  4. CYTOXAN [Concomitant]
  5. DIOVAN HCT [Concomitant]

REACTIONS (4)
  - Glomerulonephritis [Recovering/Resolving]
  - Toxic epidermal necrolysis [Recovering/Resolving]
  - Pancytopenia [Recovering/Resolving]
  - Vasculitis [Recovering/Resolving]
